FAERS Safety Report 10671643 (Version 1)
Quarter: 2014Q4

REPORT INFORMATION
  Report Type: Spontaneous
  Country: US (occurrence: US)
  Receive Date: 20141223
  Receipt Date: 20141223
  Transmission Date: 20150529
  Serious: Yes (Hospitalization, Other)
  Sender: FDA-Public Use
  Company Number: US-GILEAD-2014-0128567

PATIENT
  Age: 47 Year
  Sex: Female

DRUGS (7)
  1. SPIRONOLACTONE. [Concomitant]
     Active Substance: SPIRONOLACTONE
  2. FUROSEMIDE. [Concomitant]
     Active Substance: FUROSEMIDE
  3. TRAMADOL [Concomitant]
     Active Substance: TRAMADOL
  4. SUMATRIPTAN. [Concomitant]
     Active Substance: SUMATRIPTAN
  5. REMODULIN [Concomitant]
     Active Substance: TREPROSTINIL
  6. LETAIRIS [Suspect]
     Active Substance: AMBRISENTAN
     Indication: COR PULMONALE CHRONIC
     Dosage: 10 MG, QD
     Route: 065
     Dates: start: 20130225
  7. ADCIRCA [Concomitant]
     Active Substance: TADALAFIL

REACTIONS (2)
  - Splenic varices [Not Recovered/Not Resolved]
  - Localised oedema [Not Recovered/Not Resolved]

NARRATIVE: CASE EVENT DATE: 20141217
